FAERS Safety Report 5127074-7 (Version None)
Quarter: 2006Q4

REPORT INFORMATION
  Report Type: 
  Country: None (occurrence: None)
  Receive Date: 20061013
  Receipt Date: 20061003
  Transmission Date: 20070319
  Serious: Yes (Death, Hospitalization, Other)
  Sender: FDA-Public Use
  Company Number: US-BRISTOL-MYERS SQUIBB COMPANY-13533633

PATIENT
  Age: 32 Year
  Sex: Female
  Weight: 115 kg

DRUGS (8)
  1. CYCLOPHOSPHAMIDE [Suspect]
     Indication: BREAST CANCER
     Dates: start: 20060828, end: 20060828
  2. ADRIAMYCIN PFS [Suspect]
     Indication: BREAST CANCER
     Dates: start: 20060828, end: 20060828
  3. TAXOTERE [Suspect]
     Indication: BREAST CANCER
     Dates: start: 20060828, end: 20060828
  4. ATORVASTATIN CALCIUM [Concomitant]
  5. VALPROATE SODIUM [Concomitant]
  6. LANSOPRAZOLE [Concomitant]
  7. MULTIVITAMIN [Concomitant]
  8. DIVALPROEX SODIUM [Concomitant]

REACTIONS (10)
  - CAECITIS [None]
  - DIARRHOEA [None]
  - HAEMORRHAGE [None]
  - INTESTINAL PERFORATION [None]
  - INTESTINAL ULCER [None]
  - NAUSEA [None]
  - NEUTROPENIA [None]
  - SEPSIS [None]
  - TACHYCARDIA [None]
  - VOMITING [None]
